FAERS Safety Report 7242528-5 (Version None)
Quarter: 2010Q4

REPORT INFORMATION
  Report Type: 
  Country: None (occurrence: None)
  Receive Date: 20101130
  Receipt Date: 20090904
  Transmission Date: 20110411
  Serious: Yes (Hospitalization)
  Sender: FDA-Public Use
  Company Number: 2009-200050-NL

PATIENT
  Age: 46 Year
  Sex: Female
  Weight: 90.7 kg

DRUGS (3)
  1. NUVARING [Suspect]
     Indication: CONTRACEPTION
     Dates: start: 20050801, end: 20051116
  2. ADVAIR [Concomitant]
  3. COMBIVENT [Concomitant]

REACTIONS (4)
  - DEEP VEIN THROMBOSIS [None]
  - PANIC ATTACK [None]
  - PULMONARY EMBOLISM [None]
  - WEIGHT INCREASED [None]
